FAERS Safety Report 7216398-5 (Version None)
Quarter: 2011Q1

REPORT INFORMATION
  Report Type: 
  Country: None (occurrence: None)
  Receive Date: 20110107
  Receipt Date: 20110103
  Transmission Date: 20110831
  Serious: Yes (Other)
  Sender: FDA-Public Use
  Company Number: US-PFIZER INC-2011001421

PATIENT
  Age: 67 Year
  Sex: Male

DRUGS (4)
  1. CLONAZEPAM [Suspect]
     Indication: DEPRESSION
     Dosage: 3 MG, 1X/DAY
  2. VENLAFAXINE HCL [Suspect]
     Indication: DEPRESSION
     Dosage: 75 MG, 1X/DAY
  3. PAROXETINE HCL [Suspect]
     Indication: DEPRESSION
     Dosage: 10 MG, 1X/DAY
  4. BUPROPION HCL [Suspect]
     Indication: DEPRESSION

REACTIONS (1)
  - DYSPHORIA [None]
